FAERS Safety Report 14682660 (Version 4)
Quarter: 2018Q3

REPORT INFORMATION
  Report Type: Report from Study
  Country: None (occurrence: US)
  Receive Date: 20180327
  Receipt Date: 20180910
  Transmission Date: 20181010
  Serious: Yes (Other)
  Sender: FDA-Public Use
  Company Number: US-ABBVIE-17K-163-1903067-00

PATIENT
  Age: 63 Year
  Sex: Female

DRUGS (3)
  1. HUMIRA [Suspect]
     Active Substance: ADALIMUMAB
     Indication: RHEUMATOID ARTHRITIS
     Route: 058
  2. HUMIRA [Suspect]
     Active Substance: ADALIMUMAB
     Route: 058
  3. HUMIRA [Suspect]
     Active Substance: ADALIMUMAB
     Route: 058

REACTIONS (20)
  - Device loosening [Unknown]
  - Incomplete spinal fusion [Unknown]
  - Road traffic accident [Unknown]
  - Sciatica [Unknown]
  - Uterine enlargement [Unknown]
  - Vertigo [Recovered/Resolved]
  - Intervertebral disc disorder [Not Recovered/Not Resolved]
  - Post procedural infection [Unknown]
  - Accident [Unknown]
  - Limb injury [Unknown]
  - Musculoskeletal pain [Unknown]
  - Surgery [Unknown]
  - Impaired healing [Unknown]
  - Insomnia [Unknown]
  - Intervertebral disc protrusion [Not Recovered/Not Resolved]
  - Fatigue [Not Recovered/Not Resolved]
  - Musculoskeletal disorder [Unknown]
  - Malaise [Unknown]
  - Vaginal haemorrhage [Unknown]
  - Spinal disorder [Unknown]

NARRATIVE: CASE EVENT DATE: 2015
